FAERS Safety Report 8111893-9 (Version None)
Quarter: 2012Q1

REPORT INFORMATION
  Report Type: 
  Country: None (occurrence: None)
  Receive Date: 20120203
  Receipt Date: 20110103
  Transmission Date: 20120608
  Serious: No
  Sender: FDA-Public Use
  Company Number: US-GLAXOSMITHKLINE-A0902497A

PATIENT
  Age: 43 Year
  Sex: Male

DRUGS (5)
  1. LASIX [Suspect]
     Dosage: 40MG AS REQUIRED
     Route: 048
  2. COREG [Concomitant]
  3. ARIXTRA [Suspect]
     Indication: THROMBOSIS
     Dosage: 7.5MG PER DAY
     Route: 058
     Dates: start: 20101201
  4. PLAQUENIL [Concomitant]
  5. POTASSIUM [Concomitant]

REACTIONS (5)
  - CHROMATURIA [None]
  - PAIN IN EXTREMITY [None]
  - MUSCULAR WEAKNESS [None]
  - MICTURITION FREQUENCY DECREASED [None]
  - DYSURIA [None]
